FAERS Safety Report 11724130 (Version 1)
Quarter: 2015Q4

REPORT INFORMATION
  Report Type: Spontaneous
  Country: CA (occurrence: CA)
  Receive Date: 20151111
  Receipt Date: 20151111
  Transmission Date: 20160304
  Serious: Yes (Hospitalization)
  Sender: FDA-Public Use
  Company Number: CA-TEVA-607753ACC

PATIENT
  Age: 90 Year
  Sex: Female
  Weight: 41 kg

DRUGS (9)
  1. FERROUS SULFATE [Concomitant]
     Active Substance: FERROUS SULFATE\FERROUS SULFATE, DRIED
  2. ACTONEL [Concomitant]
     Active Substance: RISEDRONATE SODIUM
  3. CALCIUM [Concomitant]
     Active Substance: CALCIUM
  4. D-TABS [Concomitant]
     Active Substance: CHOLECALCIFEROL
  5. SYNTHROID [Concomitant]
     Active Substance: LEVOTHYROXINE SODIUM
  6. RATIO-CLARITHROMYCIN [Suspect]
     Active Substance: CLARITHROMYCIN
     Indication: PNEUMONIA
     Dosage: 500 MILLIGRAM DAILY;
     Route: 048
  7. COLACE [Concomitant]
     Active Substance: DOCUSATE SODIUM
  8. TYLENOL [Concomitant]
     Active Substance: ACETAMINOPHEN
  9. VITAMIN B12 [Concomitant]
     Active Substance: CYANOCOBALAMIN

REACTIONS (2)
  - Pain [Recovered/Resolved]
  - Dyspepsia [Recovered/Resolved]
